FAERS Safety Report 9787919 (Version 2)
Quarter: 2013Q4

REPORT INFORMATION
  Report Type: Report from Study
  Country: US (occurrence: US)
  Receive Date: 20131230
  Receipt Date: 20131230
  Transmission Date: 20140711
  Serious: Yes (Death, Hospitalization)
  Sender: FDA-Public Use
  Company Number: US-ACTELION-A-US2013-92432

PATIENT
  Age: 74 Year
  Sex: Female

DRUGS (1)
  1. VELETRI [Suspect]
     Indication: PULMONARY ARTERIAL HYPERTENSION
     Dosage: 7.86 NG/KG, PER MIN
     Route: 041
     Dates: start: 20131121

REACTIONS (11)
  - Death [Fatal]
  - Endotracheal intubation [Unknown]
  - Life support [Unknown]
  - Ventricular tachycardia [Unknown]
  - Confusional state [Unknown]
  - Sepsis [Unknown]
  - Nausea [Unknown]
  - Diarrhoea [Unknown]
  - Vomiting [Unknown]
  - Weight decreased [Unknown]
  - Dehydration [Unknown]
